FAERS Safety Report 9644087 (Version 2)
Quarter: 2013Q4

REPORT INFORMATION
  Report Type: Spontaneous
  Country: US (occurrence: US)
  Receive Date: 20131024
  Receipt Date: 20131111
  Transmission Date: 20140711
  Serious: Yes (Hospitalization)
  Sender: FDA-Public Use
  Company Number: US-GILEAD-2013-0086098

PATIENT
  Age: 76 Year
  Sex: Female
  Weight: 56.69 kg

DRUGS (12)
  1. LETAIRIS [Suspect]
     Indication: PULMONARY HYPERTENSION
     Dosage: 10 MG, QD
     Route: 048
     Dates: start: 20131001
  2. LETAIRIS [Suspect]
     Indication: SYSTEMIC SCLEROSIS
  3. VELETRI [Concomitant]
     Indication: PULMONARY HYPERTENSION
  4. ADCIRCA [Concomitant]
     Indication: PULMONARY HYPERTENSION
  5. DIGOXIN [Concomitant]
  6. FUROSEMIDE [Concomitant]
  7. SPIRONOLACTONE [Concomitant]
  8. OMEPRAZOLE [Concomitant]
  9. FERROUS SULFATE [Concomitant]
     Indication: ANAEMIA
  10. MIRAPEX [Concomitant]
  11. KLOR-CON [Concomitant]
  12. PRILOSEC                           /00661201/ [Concomitant]

REACTIONS (3)
  - Dyspnoea [Unknown]
  - Blood count abnormal [Recovered/Resolved]
  - Asthenia [Unknown]
